FAERS Safety Report 9879992 (Version 2)
Quarter: 2014Q1

REPORT INFORMATION
  Report Type: Spontaneous
  Country: US (occurrence: US)
  Receive Date: 20140207
  Receipt Date: 20140313
  Transmission Date: 20141002
  Serious: Yes (Other)
  Sender: FDA-Public Use
  Company Number: US-AMGEN-USASP2014007152

PATIENT
  Age: 70 Year
  Sex: Female
  Weight: 46.71 kg

DRUGS (4)
  1. PROLIA [Suspect]
     Indication: OSTEOPOROSIS POSTMENOPAUSAL
     Dosage: 60 MG, UNK
     Route: 058
     Dates: start: 20120827, end: 20130312
  2. PROLIA [Suspect]
     Dosage: 60 MG, UNK
     Route: 058
  3. PREMARIN [Concomitant]
     Indication: MENOPAUSAL SYMPTOMS
     Dosage: 0.625 UNK, QD
     Route: 048
     Dates: start: 2007, end: 201011
  4. VESICARE [Concomitant]
     Indication: HYPERTONIC BLADDER
     Dosage: 5 MG, UNK
     Route: 048
     Dates: start: 20120205

REACTIONS (1)
  - Jaw disorder [Not Recovered/Not Resolved]
